FAERS Safety Report 19834717 (Version 1)
Quarter: 2021Q3

REPORT INFORMATION
  Report Type: Other
  Country: US (occurrence: US)
  Receive Date: 20210915
  Receipt Date: 20210915
  Transmission Date: 20211014
  Serious: No
  Sender: FDA-Public Use
  Company Number: US-LEADIANT BIOSCIENCES INC-2020STPI000429

PATIENT
  Sex: Male

DRUGS (12)
  1. SMZ?TMP DS [Concomitant]
     Active Substance: SULFAMETHOXAZOLE\TRIMETHOPRIM
  2. MATULANE [Suspect]
     Active Substance: PROCARBAZINE HYDROCHLORIDE
     Indication: BRAIN NEOPLASM
     Dosage: 50 MG, 2 CAPSULES FOR 14 DAYS, TAKE WITH EVENING MEAL ON DAYS 8?21 OF CHEMO CYCLE AS DIRECTED
     Route: 048
     Dates: start: 20200528
  3. APAP/CODEINE [CODEINE PHOSPHATE;PARACETAMOL] [Concomitant]
  4. TRAZODONE [Concomitant]
     Active Substance: TRAZODONE HYDROCHLORIDE
  5. AMOXCLAV [AMOXICILLIN;CLAVULANIC ACID] [Concomitant]
     Active Substance: AMOXICILLIN\CLAVULANIC ACID
  6. PROMETHAZINE [Concomitant]
     Active Substance: PROMETHAZINE HYDROCHLORIDE
  7. LEVETIRACETAM. [Concomitant]
     Active Substance: LEVETIRACETAM
  8. TEMODAR [Concomitant]
     Active Substance: TEMOZOLOMIDE
  9. DEXAMETHASONE. [Concomitant]
     Active Substance: DEXAMETHASONE
  10. KEPPRA [Concomitant]
     Active Substance: LEVETIRACETAM
  11. ONDANSETRON [Concomitant]
     Active Substance: ONDANSETRON
  12. PROCHLORPERAZ [Concomitant]
     Active Substance: PROCHLORPERAZINE MALEATE

REACTIONS (1)
  - White blood cell count decreased [Not Recovered/Not Resolved]
